FAERS Safety Report 9495300 (Version 1)
Quarter: 2013Q3

REPORT INFORMATION
  Report Type: Spontaneous
  Country: CA (occurrence: None)
  Receive Date: 20130828
  Receipt Date: 20130828
  Transmission Date: 20140515
  Serious: Yes (Hospitalization)
  Sender: FDA-Public Use
  Company Number: JPI-P-029107

PATIENT
  Age: 62 Year
  Sex: Female

DRUGS (13)
  1. XYREM [Suspect]
     Indication: CATAPLEXY
     Dosage: 4.5 GM (2.25 GM, 2 IN 1 D), ORAL
     Route: 048
     Dates: start: 20121214
  2. MODAFINIL (TABLETS) [Concomitant]
  3. VENLAFAXINE [Concomitant]
  4. CLONAZEPAM [Concomitant]
  5. METHYLPHENIDATE [Concomitant]
  6. CALCIUM [Concomitant]
  7. VITAMIN D [Concomitant]
  8. FLUTICASONE [Concomitant]
  9. ROSUVASTATIN [Concomitant]
  10. ALENDRONATE SODIUM [Concomitant]
  11. MOMETASONE [Concomitant]
  12. SALMETROL [Concomitant]
  13. SALBUTAMOL [Concomitant]

REACTIONS (6)
  - Chest pain [None]
  - Blood pressure increased [None]
  - Heart rate increased [None]
  - Malaise [None]
  - Anxiety [None]
  - Aortic aneurysm [None]
